FAERS Safety Report 15468705 (Version 1)
Quarter: 2018Q4

REPORT INFORMATION
  Report Type: Spontaneous
  Country: US (occurrence: US)
  Receive Date: 20181005
  Receipt Date: 20181005
  Transmission Date: 20190204
  Serious: Yes (Other)
  Sender: FDA-Public Use
  Company Number: US-BRISTOL-MYERS SQUIBB COMPANY-BMS-2018-090556

PATIENT
  Age: 28 Year
  Sex: Male

DRUGS (1)
  1. TRIAMCINOLONE ACETONIDE. [Suspect]
     Active Substance: TRIAMCINOLONE ACETONIDE
     Indication: CURETTING OF CHALAZION
     Dosage: 1 DF= 0.5 ML, INTRAPALPEBRAL
     Route: 065

REACTIONS (3)
  - Product use in unapproved indication [Unknown]
  - Chorioretinopathy [Recovering/Resolving]
  - Product use issue [Unknown]
